FAERS Safety Report 18514357 (Version 2)
Quarter: 2020Q4

REPORT INFORMATION
  Report Type: Spontaneous
  Country: CA (occurrence: CA)
  Receive Date: 20201117
  Receipt Date: 20201120
  Transmission Date: 20210114
  Serious: Yes (Other)
  Sender: FDA-Public Use
  Company Number: CA-BAXTER-2020BAX022957

PATIENT

DRUGS (1)
  1. 0.9% SODIUM CHLORIDE INJECTION [Suspect]
     Active Substance: SODIUM CHLORIDE
     Indication: DEVICE PRIMING
     Dosage: VENOUS INFUSION LINE VIA EVOSYS MACHINES ARTIS AND ARTISET BLOOD TUBING SYSTEM
     Route: 042

REACTIONS (3)
  - Product administration error [Unknown]
  - Malaise [Unknown]
  - Haemorrhage [Unknown]
